FAERS Safety Report 5442447-0 (Version None)
Quarter: 2007Q3

REPORT INFORMATION
  Report Type: 
  Country: None (occurrence: None)
  Receive Date: 20070830
  Receipt Date: 20070820
  Transmission Date: 20080115
  Serious: Yes (Hospitalization)
  Sender: FDA-Public Use
  Company Number: CERZ-11824

PATIENT
  Age: 35 Year
  Sex: Male
  Weight: 52.7 kg

DRUGS (1)
  1. CEREZYME [Suspect]
     Indication: GAUCHER'S DISEASE
     Dosage: 59 U/KG Q2WKS IV
     Route: 042
     Dates: start: 19970402

REACTIONS (1)
  - ARTHROPATHY [None]
